FAERS Safety Report 5336882-9 (Version None)
Quarter: 2007Q2

REPORT INFORMATION
  Report Type: 
  Country: None (occurrence: None)
  Receive Date: 20070524
  Receipt Date: 20070524
  Transmission Date: 20071010
  Serious: Yes (Hospitalization)
  Sender: FDA-Public Use
  Company Number: None

PATIENT
  Age: 79 Year
  Sex: Male
  Weight: 89.9 kg

DRUGS (1)
  1. NAPROXEN [Suspect]
     Dosage: ONE TABLET TWICE A DAY PO
     Route: 048

REACTIONS (8)
  - BLOOD PRESSURE SYSTOLIC INCREASED [None]
  - FAECES DISCOLOURED [None]
  - GASTRITIS [None]
  - HAEMATOCRIT DECREASED [None]
  - HAEMOGLOBIN DECREASED [None]
  - HYPERTENSION [None]
  - MELAENA [None]
  - RED BLOOD CELL COUNT DECREASED [None]
